FAERS Safety Report 7792961-8 (Version None)
Quarter: 2011Q4

REPORT INFORMATION
  Report Type: 
  Country: None (occurrence: None)
  Receive Date: 20111003
  Receipt Date: 20110927
  Transmission Date: 20120403
  Serious: Yes (Death, Life-Threatening, Hospitalization, Other)
  Sender: FDA-Public Use
  Company Number: PHHY2011US64551

PATIENT
  Sex: Male
  Weight: 109 kg

DRUGS (2)
  1. SIROLIMUS [Concomitant]
     Indication: HEART TRANSPLANT
     Dosage: 1 MG, QD
     Route: 048
  2. NEORAL [Suspect]
     Indication: HEART TRANSPLANT
     Dosage: 75 MG, BID
     Route: 048
     Dates: start: 19920101, end: 20110101

REACTIONS (11)
  - PULSELESS ELECTRICAL ACTIVITY [None]
  - STAPHYLOCOCCAL BACTERAEMIA [None]
  - CARDIAC ARREST [None]
  - ENDOCARDITIS STAPHYLOCOCCAL [None]
  - HYPOTENSION [None]
  - RENAL FAILURE CHRONIC [None]
  - MEDICAL DEVICE COMPLICATION [None]
  - EXTRADURAL ABSCESS [None]
  - STAPHYLOCOCCAL INFECTION [None]
  - ACIDOSIS [None]
  - NEPHROPATHY TOXIC [None]
